FAERS Safety Report 7594866-4 (Version None)
Quarter: 2011Q3

REPORT INFORMATION
  Report Type: 
  Country: None (occurrence: None)
  Receive Date: 20110707
  Receipt Date: 20110623
  Transmission Date: 20111222
  Serious: Yes (Hospitalization)
  Sender: FDA-Public Use
  Company Number: JP-JNJFOC-20110408991

PATIENT
  Sex: Female
  Weight: 56 kg

DRUGS (15)
  1. LIMETHASON [Concomitant]
     Indication: RHEUMATOID ARTHRITIS
     Route: 065
  2. ULCERLMIN [Concomitant]
     Route: 048
  3. LOXONIN [Concomitant]
     Dosage: ROUTE: PO AND OD
     Route: 048
  4. REMICADE [Suspect]
     Route: 042
     Dates: start: 20091215
  5. REMICADE [Suspect]
     Route: 042
     Dates: start: 20101007
  6. LAC-B [Concomitant]
     Route: 048
  7. REMICADE [Suspect]
     Indication: RHEUMATOID ARTHRITIS
     Route: 042
     Dates: start: 20090813
  8. RHEUMATREX [Suspect]
     Indication: RHEUMATOID ARTHRITIS
     Route: 048
     Dates: end: 20101110
  9. PREDNISOLONE [Concomitant]
     Route: 065
  10. LANSOPRAZOLE [Concomitant]
     Route: 048
  11. CRESTOR [Concomitant]
     Route: 048
  12. BONOTEO [Concomitant]
     Route: 048
  13. ISONIAZID [Concomitant]
     Indication: ANTIBIOTIC PROPHYLAXIS
     Route: 048
     Dates: start: 20070301
  14. AZULFIDINE [Concomitant]
     Route: 048
  15. TACROLIMUS [Concomitant]
     Route: 065

REACTIONS (1)
  - TUBERCULOUS PLEURISY [None]
